FAERS Safety Report 6162520-1 (Version None)
Quarter: 2009Q2

REPORT INFORMATION
  Report Type: 
  Country: None (occurrence: None)
  Receive Date: 20090417
  Receipt Date: 20090406
  Transmission Date: 20091009
  Serious: Yes (Other)
  Sender: FDA-Public Use
  Company Number: 1-18044983

PATIENT
  Age: 34 Year
  Sex: Male

DRUGS (2)
  1. CITALOPRAM HYDROBROMIDE [Suspect]
     Indication: DEPRESSION
     Dosage: 20 MG/DAY, ORAL
     Route: 048
  2. TOPIRAMATE [Suspect]
     Indication: MIGRAINE
     Dosage: 25 MG/DAY, ORAL
     Route: 048

REACTIONS (2)
  - ANGLE CLOSURE GLAUCOMA [None]
  - MYOPIA [None]
